FAERS Safety Report 17831175 (Version 1)
Quarter: 2020Q2

REPORT INFORMATION
  Report Type: Spontaneous
  Country: GB (occurrence: GB)
  Receive Date: 20200527
  Receipt Date: 20200527
  Transmission Date: 20200714
  Serious: Yes (Other)
  Sender: FDA-Public Use
  Company Number: GB-JNJFOC-20200531342

PATIENT
  Age: 62 Year
  Sex: Male
  Weight: 134.26 kg

DRUGS (1)
  1. RIVAROXABAN [Suspect]
     Active Substance: RIVAROXABAN
     Indication: THROMBOSIS
     Dosage: 30 MG
     Route: 048
     Dates: start: 20200430

REACTIONS (2)
  - Abdominal distension [Unknown]
  - Pain [Unknown]
